FAERS Safety Report 26130051 (Version 2)
Quarter: 2025Q4

REPORT INFORMATION
  Report Type: Spontaneous
  Country: JP (occurrence: JP)
  Receive Date: 20251208
  Receipt Date: 20251216
  Transmission Date: 20260118
  Serious: Yes (Other)
  Sender: ASTELLAS
  Company Number: JP-ASTELLAS-2025-AER-056844

PATIENT
  Age: 67 Year
  Sex: Female

DRUGS (2)
  1. VYLOY [Suspect]
     Active Substance: ZOLBETUXIMAB-CLZB
     Indication: Gastric cancer
     Route: 042
     Dates: start: 20251009
  2. VYLOY [Suspect]
     Active Substance: ZOLBETUXIMAB-CLZB
     Route: 042

REACTIONS (3)
  - Nausea [Recovered/Resolved]
  - Neutrophil count decreased [Not Recovered/Not Resolved]
  - Large intestinal stenosis [Not Recovered/Not Resolved]

NARRATIVE: CASE EVENT DATE: 20251009
